FAERS Safety Report 9039322 (Version 1)
Quarter: 2013Q1

REPORT INFORMATION
  Report Type: Report from Study
  Country: US (occurrence: US)
  Receive Date: 20130129
  Receipt Date: 20130129
  Transmission Date: 20140127
  Serious: No
  Sender: FDA-Public Use
  Company Number: US-ABBOTT-12P-163-0930426-00

PATIENT
  Sex: Female

DRUGS (1)
  1. HUMIRA 40 MG/0.8 ML PEN [Suspect]
     Indication: ANKYLOSING SPONDYLITIS
     Dates: start: 201202

REACTIONS (6)
  - Diarrhoea [Unknown]
  - Injection site swelling [Unknown]
  - Anxiety [Unknown]
  - Headache [Unknown]
  - Dyspnoea [Unknown]
  - Wheezing [None]
